FAERS Safety Report 9343229 (Version 1)
Quarter: 2013Q2

REPORT INFORMATION
  Report Type: Spontaneous
  Country: CN (occurrence: CN)
  Receive Date: 20130611
  Receipt Date: 20130611
  Transmission Date: 20140414
  Serious: Yes (Other)
  Sender: FDA-Public Use
  Company Number: CN-ASTRAZENECA-2013SE41337

PATIENT
  Age: 12886 Day
  Sex: Male
  Weight: 66 kg

DRUGS (2)
  1. ROSUVASTATIN CALCIUM [Suspect]
     Indication: HYPERLIPIDAEMIA
     Route: 048
     Dates: start: 20121011, end: 20121011
  2. CLOPIDOGREL HYDROGEN SULPHATE [Concomitant]
     Indication: HYPERLIPIDAEMIA
     Route: 048
     Dates: start: 20121011, end: 20121011

REACTIONS (2)
  - Coordination abnormal [Recovered/Resolved]
  - Muscular weakness [Recovered/Resolved]
